FAERS Safety Report 11326749 (Version 3)
Quarter: 2017Q3

REPORT INFORMATION
  Report Type: Report from Study
  Country: CA (occurrence: CA)
  Receive Date: 20150731
  Receipt Date: 20170703
  Transmission Date: 20171127
  Serious: Yes (Hospitalization)
  Sender: FDA-Public Use
  Company Number: CA-ROCHE-1615123

PATIENT
  Age: 74 Year
  Sex: Male
  Weight: 85.3 kg

DRUGS (36)
  1. TYLENOL [Concomitant]
     Active Substance: ACETAMINOPHEN
     Indication: PROPHYLAXIS
     Route: 048
     Dates: start: 20140410, end: 20140904
  2. OBINUTUZUMAB. [Suspect]
     Active Substance: OBINUTUZUMAB
     Indication: CHRONIC LYMPHOCYTIC LEUKAEMIA
     Dosage: C1D1?DOSE AS PER PROTOCOL: PARTICIPANTS WILL RECEIVE OBINUTUZUMAB 1000 MG IV INFUSION ON DAYS 1/2 (D
     Route: 042
     Dates: start: 20140410, end: 20140410
  3. OBINUTUZUMAB. [Suspect]
     Active Substance: OBINUTUZUMAB
     Dosage: C1D8
     Route: 042
     Dates: start: 20140417, end: 20140417
  4. CRESTOR [Concomitant]
     Active Substance: ROSUVASTATIN CALCIUM
     Indication: DYSLIPIDAEMIA
     Route: 048
     Dates: start: 1994
  5. IVIG [Concomitant]
     Active Substance: HUMAN IMMUNOGLOBULIN G
     Route: 042
     Dates: start: 20150729
  6. CEFTRIAXONE. [Concomitant]
     Active Substance: CEFTRIAXONE
     Route: 042
     Dates: start: 20160628
  7. ASA [Concomitant]
     Active Substance: ASPIRIN
     Dosage: ONCE DAILY IF PLATELETS ARE ABOVE 50
     Route: 048
     Dates: start: 1994
  8. TECTA [Concomitant]
     Active Substance: PANTOPRAZOLE MAGNESIUM
     Route: 048
     Dates: start: 20150728
  9. TYLENOL [Concomitant]
     Active Substance: ACETAMINOPHEN
     Dosage: PRE IVIG
     Route: 048
     Dates: start: 20150729
  10. ATROVENT [Concomitant]
     Active Substance: IPRATROPIUM BROMIDE
     Dosage: 2 SPRAYS
     Route: 045
     Dates: start: 201603
  11. OBINUTUZUMAB. [Suspect]
     Active Substance: OBINUTUZUMAB
     Dosage: C2D1?DAY 1 EACH CYCLE?MOST RECENT DOSE PRIOR TO EVENT ONSET 04/SEP/2014
     Route: 042
     Dates: start: 20140508, end: 20140508
  12. PIPERACILLIN AND TAZOBACTAM [Concomitant]
     Active Substance: PIPERACILLIN SODIUM\TAZOBACTAM SODIUM
     Route: 042
     Dates: start: 20140416, end: 20140416
  13. TUMS [Concomitant]
     Active Substance: CALCIUM CARBONATE
     Route: 048
     Dates: start: 20140423
  14. NORMAL SALINE [Concomitant]
     Active Substance: SODIUM CHLORIDE
     Dosage: 150 HH/CR CONTINUOUS
     Route: 042
     Dates: start: 20150410, end: 20150411
  15. NORMAL SALINE [Concomitant]
     Active Substance: SODIUM CHLORIDE
     Dosage: 50 HH/CR CONTINUOUS
     Route: 042
     Dates: start: 20150412, end: 20150414
  16. OBINUTUZUMAB. [Suspect]
     Active Substance: OBINUTUZUMAB
     Dosage: C1D15
     Route: 042
     Dates: start: 20140424, end: 20140424
  17. BENADRYL [Concomitant]
     Active Substance: DIPHENHYDRAMINE HYDROCHLORIDE
     Indication: PROPHYLAXIS
     Route: 042
     Dates: start: 20150410, end: 20150410
  18. TYLENOL [Concomitant]
     Active Substance: ACETAMINOPHEN
     Route: 048
     Dates: start: 20150410, end: 20150410
  19. OBINUTUZUMAB. [Suspect]
     Active Substance: OBINUTUZUMAB
     Dosage: C1D2?TREATMENT DELAYED BY 1 DAY DUE TO POSSIBLE TLS
     Route: 042
     Dates: start: 20140412, end: 20140412
  20. OBINUTUZUMAB. [Suspect]
     Active Substance: OBINUTUZUMAB
     Dosage: C4D1
     Route: 042
     Dates: start: 20140710, end: 20140710
  21. TECTA [Concomitant]
     Active Substance: PANTOPRAZOLE MAGNESIUM
     Indication: GASTROOESOPHAGEAL REFLUX DISEASE
     Route: 048
     Dates: start: 20140313, end: 20140623
  22. PIPERACILLIN AND TAZOBACTAM [Concomitant]
     Active Substance: PIPERACILLIN SODIUM\TAZOBACTAM SODIUM
     Route: 042
     Dates: start: 20150727, end: 20150730
  23. AVAMYS [Concomitant]
     Active Substance: FLUTICASONE FUROATE
     Dosage: 110 MCH
     Route: 050
     Dates: start: 20150721
  24. ZYCLARA [Concomitant]
     Active Substance: IMIQUIMOD
     Route: 061
     Dates: start: 201512
  25. OBINUTUZUMAB. [Suspect]
     Active Substance: OBINUTUZUMAB
     Dosage: C5D1
     Route: 042
     Dates: start: 20140807, end: 20140807
  26. OBINUTUZUMAB. [Suspect]
     Active Substance: OBINUTUZUMAB
     Dosage: C6D1
     Route: 042
     Dates: start: 20140904
  27. AMOXICILLIN. [Concomitant]
     Active Substance: AMOXICILLIN
     Route: 048
     Dates: start: 20150624, end: 20150704
  28. TYLENOL [Concomitant]
     Active Substance: ACETAMINOPHEN
     Dosage: AS REQUIRED
     Route: 048
     Dates: start: 20150728, end: 20150728
  29. OBINUTUZUMAB. [Suspect]
     Active Substance: OBINUTUZUMAB
     Dosage: C3D1
     Route: 042
     Dates: start: 20140605, end: 20140605
  30. BENDAMUSTINE [Suspect]
     Active Substance: BENDAMUSTINE
     Indication: CHRONIC LYMPHOCYTIC LEUKAEMIA
     Dosage: DOSE AS PER PROTOCOL: DOSE AS PER PROTOCOL: PARTICIPANTS WILL RECEIVE BENDAMUSTINE EVERYDAY (QD) ON
     Route: 042
     Dates: start: 20140410
  31. REACTINE (CANADA) [Concomitant]
     Active Substance: CETIRIZINE HYDROCHLORIDE
     Route: 048
     Dates: start: 20160106
  32. KEFLEX [Concomitant]
     Active Substance: CEPHALEXIN
     Route: 048
     Dates: start: 20160627, end: 20160629
  33. BENDAMUSTINE [Suspect]
     Active Substance: BENDAMUSTINE
     Dosage: C4D1: 10/JUL/2014, DOSE REDUCED DUE TO PREVIOUS SAE OF GRADE 4 NEUTROPENIA, DAYS 1 + 2 EACH CYCLE?C4
     Route: 042
     Dates: start: 20140710
  34. TUMS [Concomitant]
     Active Substance: CALCIUM CARBONATE
     Route: 048
     Dates: start: 20140411, end: 20140604
  35. BENADRYL [Concomitant]
     Active Substance: DIPHENHYDRAMINE HYDROCHLORIDE
     Dosage: PRE IVIG
     Route: 042
     Dates: start: 20150729
  36. NORMAL SALINE [Concomitant]
     Active Substance: SODIUM CHLORIDE
     Dosage: 120 HH/CR CONTINUOUS
     Route: 042
     Dates: start: 20150728, end: 20150730

REACTIONS (1)
  - Febrile neutropenia [Recovered/Resolved]

NARRATIVE: CASE EVENT DATE: 20150727
